FAERS Safety Report 17180824 (Version 1)
Quarter: 2019Q4

REPORT INFORMATION
  Report Type: Spontaneous
  Country: US (occurrence: US)
  Receive Date: 20191219
  Receipt Date: 20191219
  Transmission Date: 20200122
  Serious: Yes (Death, Other)
  Sender: FDA-Public Use
  Company Number: US-HONG KONG KING-FRIEND INDUSTRIAL COMPANY-2019NKF00037

PATIENT
  Age: 66 Year
  Sex: Female

DRUGS (3)
  1. BIVALIRUDIN. [Concomitant]
     Active Substance: BIVALIRUDIN
     Indication: ANTICOAGULANT THERAPY
  2. HEPARIN SODIUM. [Suspect]
     Active Substance: HEPARIN SODIUM
     Indication: ANTICOAGULANT THERAPY
     Dosage: 400 UNITS/KG
     Route: 065
  3. HEPARIN SODIUM. [Suspect]
     Active Substance: HEPARIN SODIUM
     Dosage: 400 UNITS/KG (UNFRACTIONATED)
     Route: 065

REACTIONS (5)
  - Heparin-induced thrombocytopenia [Recovering/Resolving]
  - Multiple organ dysfunction syndrome [Fatal]
  - Renal vein thrombosis [Recovering/Resolving]
  - Cerebral infarction [Not Recovered/Not Resolved]
  - Acute kidney injury [Not Recovered/Not Resolved]
